FAERS Safety Report 7795518-8 (Version None)
Quarter: 2011Q3

REPORT INFORMATION
  Report Type: 
  Country: None (occurrence: None)
  Receive Date: 20110930
  Receipt Date: 20110923
  Transmission Date: 20111222
  Serious: Yes (Hospitalization, Other)
  Sender: FDA-Public Use
  Company Number: 1000022171

PATIENT
  Age: 62 Year
  Sex: Male

DRUGS (11)
  1. PREDNISONE [Concomitant]
  2. MOBIC [Concomitant]
  3. COMBIVENT (IPRATROPIUM, ALBUTEROL) (IPRATROPIUM, ALBUTEROL) [Concomitant]
  4. PROTONIX (PANTOPRAZOLE SODIUM SESQUIHYDRATE) (PANTOPRAZOLE SODIUM SESQ [Concomitant]
  5. LISINOPRIL [Concomitant]
  6. ASPIRIN [Concomitant]
  7. TEFLARO [Suspect]
     Indication: CELLULITIS
     Dosage: 1200 MG (600 MG, 1 IN 12 HR), INTRAVENOUS DRIP
     Route: 041
     Dates: start: 20110629, end: 20110711
  8. TEFLARO [Suspect]
     Indication: STAPHYLOCOCCAL INFECTION
     Dosage: 1200 MG (600 MG, 1 IN 12 HR), INTRAVENOUS DRIP
     Route: 041
     Dates: start: 20110629, end: 20110711
  9. SIMVASTATIN [Concomitant]
  10. LISINOPRIL + HYDROCHLOROTHIAZIDE (LISINOPRIL, HYDROCHLOROTHIAZIDE) (LI [Concomitant]
  11. SINGULAIR (MONTELUKAST SODIUM) (MONTELUKAST SODIUM) [Concomitant]

REACTIONS (2)
  - IDIOPATHIC THROMBOCYTOPENIC PURPURA [None]
  - HYPOKALAEMIA [None]
